FAERS Safety Report 8698650 (Version 4)
Quarter: 2012Q4

REPORT INFORMATION
  Report Type: 
  Country: US (occurrence: US)
  Receive Date: 20120802
  Receipt Date: 20120920
  Transmission Date: 20130627
  Serious: Yes (Other)
  Sender: FDA-Public Use
  Company Number: US-PFIZER INC-2012184724

PATIENT
  Age: 43 Year
  Sex: Female

DRUGS (2)
  1. NEURONTIN [Suspect]
     Dosage: 600 mg, 1x/day
     Route: 048
     Dates: start: 20120323, end: 20120803
  2. ALLEGRA D [Suspect]
     Indication: RASH
     Dosage: UNK

REACTIONS (1)
  - Asthma [Unknown]
